FAERS Safety Report 10425414 (Version 1)
Quarter: 2014Q3

REPORT INFORMATION
  Report Type: Report from Study
  Country: US (occurrence: US)
  Receive Date: 20140902
  Receipt Date: 20140902
  Transmission Date: 20150326
  Serious: Yes (Hospitalization, Other)
  Sender: FDA-Public Use
  Company Number: PHEH2014US017115

PATIENT
  Age: 16 Year
  Sex: Female
  Weight: 45.35 kg

DRUGS (4)
  1. TOBI PODHALER [Suspect]
     Active Substance: TOBRAMYCIN
     Indication: CYSTIC FIBROSIS
     Dosage: 112 MG, BID
     Route: 055
  2. PULMOZYME [Concomitant]
     Active Substance: DORNASE ALFA
     Dosage: UNK
  3. AZITHROMYCIN [Concomitant]
     Active Substance: AZITHROMYCIN ANHYDROUS
     Dosage: UNK
  4. AQUADEKS [Concomitant]
     Dosage: UNK

REACTIONS (3)
  - Cystic fibrosis [Recovering/Resolving]
  - Condition aggravated [Recovering/Resolving]
  - Weight gain poor [Recovering/Resolving]

NARRATIVE: CASE EVENT DATE: 201406
